FAERS Safety Report 5520368-2 (Version None)
Quarter: 2007Q4

REPORT INFORMATION
  Report Type: 
  Country: None (occurrence: None)
  Receive Date: 20071119
  Receipt Date: 20071114
  Transmission Date: 20080405
  Serious: Yes (Death, Other)
  Sender: FDA-Public Use
  Company Number: PHFR2007GB03337

PATIENT
  Age: 44 Year
  Sex: Female

DRUGS (1)
  1. SANDOSTATIN [Suspect]
     Indication: FISTULA DISCHARGE
     Route: 065

REACTIONS (2)
  - DEATH [None]
  - HYPERKALAEMIA [None]
